FAERS Safety Report 8952992 (Version 2)
Quarter: 2013Q1

REPORT INFORMATION
  Report Type: Spontaneous
  Country: US (occurrence: US)
  Receive Date: 20121205
  Receipt Date: 20130118
  Transmission Date: 20140127
  Serious: No
  Sender: FDA-Public Use
  Company Number: US-009507513-1212USA000338

PATIENT
  Age: 27 Year
  Sex: Female

DRUGS (1)
  1. IMPLANON [Suspect]
     Indication: CONTRACEPTION
     Dosage: 1 DF UP TO THREE YEARS
     Dates: start: 20091123

REACTIONS (6)
  - Unintended pregnancy [Unknown]
  - Incorrect drug administration duration [Unknown]
  - Depression [Unknown]
  - Muscle spasms [Unknown]
  - Hypoaesthesia [Unknown]
  - Muscular weakness [Unknown]
